FAERS Safety Report 5407974-0 (Version None)
Quarter: 2007Q3

REPORT INFORMATION
  Report Type: 
  Country: None (occurrence: None)
  Receive Date: 20070803
  Receipt Date: 20070716
  Transmission Date: 20080115
  Serious: Yes (Other)
  Sender: FDA-Public Use
  Company Number: 5528 / E2B_00010801

PATIENT
  Age: 78 Year
  Sex: Male

DRUGS (2)
  1. GLUCOVANCE [Suspect]
     Indication: DIABETES MELLITUS
     Dosage: 1.25 MG / 250 MG
  2. AVALIDE TABL [Concomitant]

REACTIONS (2)
  - LOWER LIMB FRACTURE [None]
  - MYOCARDIAL INFARCTION [None]
